FAERS Safety Report 16313765 (Version 1)
Quarter: 2019Q2

REPORT INFORMATION
  Report Type: Spontaneous
  Country: US (occurrence: US)
  Receive Date: 20190515
  Receipt Date: 20190515
  Transmission Date: 20190711
  Serious: No
  Sender: FDA-Public Use
  Company Number: US-PFIZER INC-2019203617

PATIENT
  Age: 55 Year
  Sex: Female
  Weight: 95.25 kg

DRUGS (5)
  1. GABAPENTIN. [Suspect]
     Active Substance: GABAPENTIN
     Indication: NEURALGIA
     Dosage: UNK UNK, 3X/DAY
     Route: 048
  2. PROZAC [Concomitant]
     Active Substance: FLUOXETINE HYDROCHLORIDE
     Indication: DEPRESSION
     Dosage: 3 DF, DAILY (3 CAPSULES DAILY)
     Route: 048
     Dates: start: 201810
  3. HYDROCHLOROTHIAZIDE. [Concomitant]
     Active Substance: HYDROCHLOROTHIAZIDE
     Indication: BLOOD PRESSURE ABNORMAL
     Dosage: 1 DF (TABLET), DAILY
     Route: 048
     Dates: start: 2014
  4. LISINOPRIL. [Concomitant]
     Active Substance: LISINOPRIL
     Indication: BLOOD PRESSURE ABNORMAL
     Dosage: 1 DF (TABLET), DAILY
     Route: 048
  5. KLONOPIN [Concomitant]
     Active Substance: CLONAZEPAM
     Indication: INSOMNIA
     Dosage: 1 DF (1 TABLET), AS NEEDED
     Route: 048
     Dates: start: 2018

REACTIONS (4)
  - Palpitations [Unknown]
  - Drug ineffective for unapproved indication [Unknown]
  - Panic attack [Unknown]
  - Off label use [Unknown]
